FAERS Safety Report 6082993-2 (Version None)
Quarter: 2009Q1

REPORT INFORMATION
  Report Type: 
  Country: None (occurrence: None)
  Receive Date: 20090218
  Receipt Date: 20090214
  Transmission Date: 20090719
  Serious: No
  Sender: FDA-Public Use
  Company Number: US-B.I. PHARMACEUTICALS,INC./RIDGEFIELD-2009-BP-01893BP

PATIENT
  Age: 26 Year
  Sex: Male

DRUGS (2)
  1. FLOMAX [Suspect]
     Indication: PROSTATITIS
     Route: 048
     Dates: start: 20090210
  2. CIPROFLOXACIN [Suspect]
     Indication: PROSTATITIS
     Dates: start: 20090210

REACTIONS (1)
  - SEMEN VOLUME DECREASED [None]
